FAERS Safety Report 25611575 (Version 2)
Quarter: 2025Q3

REPORT INFORMATION
  Report Type: Spontaneous
  Country: US (occurrence: US)
  Receive Date: 20250728
  Receipt Date: 20250821
  Transmission Date: 20251020
  Serious: Yes (Other)
  Sender: ELI LILLY AND COMPANY
  Company Number: US-ELI_LILLY_AND_COMPANY-US202507021277

PATIENT
  Age: 57 Year
  Sex: Female

DRUGS (2)
  1. VERZENIO [Suspect]
     Active Substance: ABEMACICLIB
     Indication: Breast cancer female
     Dosage: 50 MG, BID
     Route: 048
  2. BENADRYL [Suspect]
     Active Substance: DIPHENHYDRAMINE HYDROCHLORIDE
     Indication: Product used for unknown indication
     Route: 065

REACTIONS (10)
  - Malignant neoplasm progression [Unknown]
  - Oral discomfort [Unknown]
  - Rash [Recovered/Resolved]
  - Lip exfoliation [Unknown]
  - Eye discharge [Unknown]
  - Scab [Unknown]
  - Somnolence [Unknown]
  - Throat tightness [Recovered/Resolved]
  - Alopecia [Unknown]
  - Cheilitis [Unknown]
